FAERS Safety Report 19168885 (Version 1)
Quarter: 2021Q2

REPORT INFORMATION
  Report Type: Spontaneous
  Country: US (occurrence: US)
  Receive Date: 20210421
  Receipt Date: 20210421
  Transmission Date: 20210717
  Serious: Yes (Death)
  Sender: FDA-Public Use
  Company Number: None

PATIENT
  Sex: Male
  Weight: 120 kg

DRUGS (4)
  1. VINCRISTINE SULFATE. [Concomitant]
     Active Substance: VINCRISTINE SULFATE
  2. DAUNORUBICIN [Suspect]
     Active Substance: DAUNORUBICIN
  3. DEXAMETHASONE. [Concomitant]
     Active Substance: DEXAMETHASONE
  4. CYTARABINE. [Concomitant]
     Active Substance: CYTARABINE

REACTIONS (20)
  - Seizure [None]
  - Anxiety [None]
  - Splenic rupture [None]
  - Acute kidney injury [None]
  - Acute myocardial infarction [None]
  - Jaundice [None]
  - Multiple organ dysfunction syndrome [None]
  - Fall [None]
  - Hypotension [None]
  - Neck pain [None]
  - Pleural effusion [None]
  - Anuria [None]
  - Bradycardia [None]
  - Atrial flutter [None]
  - Dialysis [None]
  - Acute respiratory failure [None]
  - Splenomegaly [None]
  - Haematoma [None]
  - Atelectasis [None]
  - Lung consolidation [None]

NARRATIVE: CASE EVENT DATE: 20180206
